FAERS Safety Report 15363367 (Version 1)
Quarter: 2018Q3

REPORT INFORMATION
  Report Type: Spontaneous
  Country: FR (occurrence: FR)
  Receive Date: 20180907
  Receipt Date: 20180907
  Transmission Date: 20181010
  Serious: Yes (Hospitalization)
  Sender: FDA-Public Use
  Company Number: PHHY2018FR089268

PATIENT
  Age: 80 Year
  Sex: Male

DRUGS (5)
  1. FUROSEMIDE. [Suspect]
     Active Substance: FUROSEMIDE
     Indication: HYPERTENSION
     Dosage: 20 MG, QD (1X/DAY)
     Route: 048
     Dates: start: 20091029, end: 20091030
  2. LYRICA [Suspect]
     Active Substance: PREGABALIN
     Indication: POLYNEUROPATHY
     Dosage: 200 MG, QD (1X/DAY)
     Route: 048
     Dates: start: 20091014
  3. TRAMADOL HYDROCHLORIDE. [Suspect]
     Active Substance: TRAMADOL HYDROCHLORIDE
     Indication: POLYNEUROPATHY
     Dosage: 100 MG, QD (3X/DAY)
     Route: 048
     Dates: start: 20091014, end: 20091030
  4. RIVOTRIL [Suspect]
     Active Substance: CLONAZEPAM
     Indication: POLYNEUROPATHY
     Dosage: 3 GTT, QD (1X/DAY)
     Route: 048
     Dates: start: 20091029, end: 20091030
  5. EFFERALGAN [Suspect]
     Active Substance: ACETAMINOPHEN
     Indication: POLYNEUROPATHY
     Dosage: 1 G, QD (2X/DAY)
     Route: 048
     Dates: start: 20091029

REACTIONS (1)
  - Coma [Recovered/Resolved]

NARRATIVE: CASE EVENT DATE: 20091030
